FAERS Safety Report 10706783 (Version 3)
Quarter: 2015Q1

REPORT INFORMATION
  Report Type: Spontaneous
  Country: JP (occurrence: JP)
  Receive Date: 20150113
  Receipt Date: 20150311
  Transmission Date: 20150721
  Serious: Yes (Death)
  Sender: FDA-Public Use
  Company Number: JP-PFIZER INC-2015009133

PATIENT
  Age: 77 Year
  Sex: Female
  Weight: 41 kg

DRUGS (9)
  1. GENTACIN [Concomitant]
     Active Substance: GENTAMICIN SULFATE
     Indication: ENDOCARDITIS
     Dosage: 20 MG, 3X/DAY
     Route: 041
     Dates: start: 20150107, end: 20150107
  2. GENTACIN [Concomitant]
     Active Substance: GENTAMICIN SULFATE
     Dosage: 60 MG, 3X/DAY
     Route: 041
     Dates: start: 20150107, end: 20150107
  3. BFLUID [Concomitant]
     Active Substance: AMINO ACIDS\DEXTROSE\ELECTROLYTES NOS\VITAMINS
     Indication: DEHYDRATION
     Dosage: 500 ML, 1X/DAY
     Route: 041
     Dates: start: 20150106, end: 20150107
  4. ROCEPHIN [Concomitant]
     Active Substance: CEFTRIAXONE SODIUM
     Indication: ENDOCARDITIS
     Dosage: 2 G, 1X/DAY
     Route: 041
     Dates: start: 20150106, end: 20150106
  5. GASTER [Concomitant]
     Active Substance: FAMOTIDINE
     Indication: GASTRIC ULCER
     Dosage: 20 MG, 1X/DAY
     Route: 048
     Dates: start: 20150106, end: 20150106
  6. VITAMEDIN [Concomitant]
     Active Substance: CYANOCOBALAMIN\PYRIDOXINE HYDROCHLORIDE\THIAMINE
     Indication: VITAMIN SUPPLEMENTATION
     Dosage: 1 DF, 1X/DAY
     Route: 041
     Dates: start: 20150106, end: 20150107
  7. RADICUT [Concomitant]
     Active Substance: EDARAVONE
     Indication: CEREBRAL INFARCTION
     Dosage: 30 MG, 1X/DAY
     Route: 041
     Dates: start: 20150106, end: 20150106
  8. UNASYN [Suspect]
     Active Substance: AMPICILLIN SODIUM\SULBACTAM SODIUM
     Indication: ENDOCARDITIS
     Dosage: 3 G, 4X/DAY
     Route: 041
     Dates: start: 20150107, end: 20150107
  9. THEO-DUR [Concomitant]
     Active Substance: THEOPHYLLINE ANHYDROUS
     Indication: ASTHMA
     Dosage: 200 MG, 1X/DAY
     Route: 048
     Dates: start: 20150107, end: 20150107

REACTIONS (2)
  - Circulatory collapse [Fatal]
  - Anaphylactic shock [Fatal]

NARRATIVE: CASE EVENT DATE: 20150107
